FAERS Safety Report 5065192-2 (Version None)
Quarter: 2006Q3

REPORT INFORMATION
  Report Type: 
  Country: None (occurrence: None)
  Receive Date: 20060703
  Receipt Date: 20051006
  Transmission Date: 20061208
  Serious: Yes (Disabling)
  Sender: FDA-Public Use
  Company Number: WAES 0510USA04936

PATIENT
  Age: 46 Year
  Sex: Male
  Weight: 86.637 kg

DRUGS (2)
  1. HYZAAR [Suspect]
     Indication: HYPERTENSION
     Dosage: 50-12.5 MG/DAILY/PO
     Route: 048
     Dates: start: 20050401, end: 20050926
  2. ADVICOR [Concomitant]

REACTIONS (4)
  - FATIGUE [None]
  - MYALGIA [None]
  - NAUSEA [None]
  - ROAD TRAFFIC ACCIDENT [None]
